FAERS Safety Report 5085517-1 (Version None)
Quarter: 2006Q3

REPORT INFORMATION
  Report Type: 
  Country: None (occurrence: None)
  Receive Date: 20060731
  Receipt Date: 20060605
  Transmission Date: 20061208
  Serious: Yes (Life-Threatening, Hospitalization)
  Sender: FDA-Public Use
  Company Number: 200513120BWH

PATIENT
  Age: 51 Year
  Sex: Female
  Weight: 124.2856 kg

DRUGS (2)
  1. AVELOX [Suspect]
     Indication: BRONCHITIS
     Dosage: 400 MG QD ORAL
     Route: 048
     Dates: start: 20050926, end: 20050929
  2. ROBITUSSIN WITH CODEINE [Suspect]
     Indication: BRONCHITIS
     Route: 065
     Dates: start: 20050926

REACTIONS (6)
  - ANXIETY [None]
  - BLOOD PRESSURE INCREASED [None]
  - DYSARTHRIA [None]
  - FEELING ABNORMAL [None]
  - HEART RATE INCREASED [None]
  - HYPERSENSITIVITY [None]
